FAERS Safety Report 7685269-2 (Version None)
Quarter: 2011Q3

REPORT INFORMATION
  Report Type: 
  Country: None (occurrence: None)
  Receive Date: 20110816
  Receipt Date: 20110808
  Transmission Date: 20111222
  Serious: Yes (Other)
  Sender: FDA-Public Use
  Company Number: JP-PFIZER INC-2011184263

PATIENT
  Age: 50 Year
  Sex: Male

DRUGS (6)
  1. CARBOPLATIN [Suspect]
     Dosage: AUC 6561 MG, CYCLIC
  2. DOXORUBICIN HCL [Suspect]
  3. VINCRISTINE SULFATE [Suspect]
  4. CYCLOPHOSPHAMIDE [Suspect]
  5. PACLITAXEL [Suspect]
     Dosage: 362 MG (200 MG/M2)
  6. CISPLATIN [Suspect]
     Dosage: 92.5 MG (50 MG/M2)

REACTIONS (1)
  - NEUROPATHY PERIPHERAL [None]
